FAERS Safety Report 9550567 (Version 1)
Quarter: 2013Q3

REPORT INFORMATION
  Report Type: Spontaneous
  Country: US (occurrence: US)
  Receive Date: 20130924
  Receipt Date: 20130924
  Transmission Date: 20140515
  Serious: No
  Sender: FDA-Public Use
  Company Number: US-SANOFI-AVENTIS-2013SA035657

PATIENT
  Age: 56 Year
  Sex: Female
  Weight: 72.57 kg

DRUGS (8)
  1. AUBAGIO [Suspect]
     Indication: RELAPSING-REMITTING MULTIPLE SCLEROSIS
     Route: 048
     Dates: start: 20130313
  2. AVONEX [Concomitant]
     Dates: start: 2012, end: 20130312
  3. LISINOPRIL [Concomitant]
     Indication: HYPERTENSION
     Dates: start: 201209
  4. LOVASTATIN [Concomitant]
     Indication: HYPERCHOLESTEROLAEMIA
     Dates: start: 201209
  5. PREMARIN [Concomitant]
     Dates: start: 201209
  6. NEURONTIN [Concomitant]
     Dosage: 100MGX2
     Dates: start: 201211
  7. LEVOTHYROXINE [Concomitant]
     Indication: HYPOTHYROIDISM
  8. FERROUS SULFATE [Concomitant]

REACTIONS (5)
  - Headache [Not Recovered/Not Resolved]
  - Photopsia [Recovering/Resolving]
  - Tinnitus [Not Recovered/Not Resolved]
  - Alopecia [Unknown]
  - Exposure during pregnancy [Unknown]
